FAERS Safety Report 5741083-6 (Version None)
Quarter: 2008Q2

REPORT INFORMATION
  Report Type: 
  Country: None (occurrence: None)
  Receive Date: 20080514
  Receipt Date: 20080505
  Transmission Date: 20081010
  Serious: Yes (Other)
  Sender: FDA-Public Use
  Company Number: CHPA2008US07788

PATIENT
  Age: 75 Year
  Sex: Male

DRUGS (1)
  1. NODOZ           (CAFFEINE)      CAPLET [Suspect]
     Indication: SOMNOLENCE
     Dosage: 200 MG, QD, ORAL
     Route: 048

REACTIONS (2)
  - BLOOD PRESSURE INCREASED [None]
  - DIZZINESS [None]
